FAERS Safety Report 4308356-5 (Version None)
Quarter: 2004Q1

REPORT INFORMATION
  Report Type: 
  Country: None (occurrence: None)
  Receive Date: 20040301
  Receipt Date: 20040220
  Transmission Date: 20041129
  Serious: Yes (Hospitalization, Disabling)
  Sender: FDA-Public Use
  Company Number: PHBS2004DK02601

PATIENT
  Sex: Male

DRUGS (15)
  1. LAMISIL [Suspect]
     Dosage: 250 MG/DAY
     Route: 048
     Dates: start: 20031219, end: 20040125
  2. PREDNISOLONE [Concomitant]
     Dosage: 20 MG, QD
  3. PANTOLOC ^BYK GULDEN^ [Concomitant]
     Dosage: 20 MG, QD
  4. HEXADILAT [Concomitant]
     Dosage: 10 MG, BID
  5. PLAQUENIL [Concomitant]
     Dosage: 200 MG, QD
  6. TAFIL [Concomitant]
     Dosage: .5 MG, BID
  7. UNIKALK WITH D-VITAMIN [Concomitant]
     Dosage: 1 DF, BID
     Route: 048
  8. PINEX [Concomitant]
     Dosage: 1 G, BID
  9. B-COMBIN FORTE TABLET [Concomitant]
     Dosage: 1 DF, TID
     Route: 048
  10. THIAMIN [Concomitant]
     Dosage: 300 MG, QD
  11. STRONG E-VITAMIN [Concomitant]
     Dosage: 100 MG, QD
  12. STRONG C-VITAMIN [Concomitant]
     Dosage: 500 MG, QD
  13. SKANALKA [Concomitant]
     Dosage: UNK, TID
  14. FOSAMAX [Concomitant]
     Dosage: 70 MG, QD
  15. ANTABUSE [Concomitant]
     Dosage: 100 MG, ONCE ON TUESDAY + FRIDAY

REACTIONS (2)
  - CONDITION AGGRAVATED [None]
  - CUTANEOUS LUPUS ERYTHEMATOSUS [None]
